FAERS Safety Report 7955194-8 (Version None)
Quarter: 2011Q4

REPORT INFORMATION
  Report Type: 
  Country: None (occurrence: None)
  Receive Date: 20111202
  Receipt Date: 20111123
  Transmission Date: 20120403
  Serious: Yes (Hospitalization, Disabling, Other)
  Sender: FDA-Public Use
  Company Number: PHHY2011FR89624

PATIENT
  Sex: Male
  Weight: 60 kg

DRUGS (5)
  1. BIRODOGYL [Concomitant]
     Indication: DENTAL CARE
     Dates: start: 20110101
  2. BIPERIDYS [Concomitant]
  3. AFINITOR [Suspect]
     Dosage: 5 MG, DAILY
     Route: 048
     Dates: start: 20110327, end: 20110711
  4. LANSOPRAZOLE [Concomitant]
  5. AFINITOR [Suspect]
     Indication: RENAL CANCER
     Dosage: 10 MG DAILY
     Dates: start: 20101207, end: 20110326

REACTIONS (14)
  - MICROCYTIC ANAEMIA [None]
  - MACROCYTOSIS [None]
  - TRANSFERRIN SATURATION DECREASED [None]
  - NEOPLASM MALIGNANT [None]
  - HAEMOGLOBIN DECREASED [None]
  - HAEMATOCRIT DECREASED [None]
  - RED BLOOD CELL COUNT DECREASED [None]
  - IRON DEFICIENCY ANAEMIA [None]
  - HYPOSIDERAEMIA [None]
  - MEAN CELL VOLUME DECREASED [None]
  - LYMPHOPENIA [None]
  - BLOOD IRON DECREASED [None]
  - LYMPHOCYTE COUNT DECREASED [None]
  - NEOPLASM PROGRESSION [None]
